FAERS Safety Report 7893866-4 (Version None)
Quarter: 2011Q4

REPORT INFORMATION
  Report Type: 
  Country: None (occurrence: None)
  Receive Date: 20111104
  Receipt Date: 20111026
  Transmission Date: 20120403
  Serious: Yes (Other)
  Sender: FDA-Public Use
  Company Number: PHHY2011IT95445

PATIENT

DRUGS (2)
  1. PROGRAF [Concomitant]
  2. SIMULECT [Suspect]
     Indication: LIVER TRANSPLANT
     Dosage: 20 MG,
     Route: 042

REACTIONS (1)
  - OSMOTIC DEMYELINATION SYNDROME [None]
